FAERS Safety Report 10096137 (Version 2)
Quarter: 2014Q2

REPORT INFORMATION
  Report Type: Report from Study
  Country: US (occurrence: US)
  Receive Date: 20140422
  Receipt Date: 20140610
  Transmission Date: 20141212
  Serious: Yes (Hospitalization)
  Sender: FDA-Public Use
  Company Number: US-BRISTOL-MYERS SQUIBB COMPANY-20620449

PATIENT
  Age: 56 Year
  Sex: Male
  Weight: 92.1 kg

DRUGS (11)
  1. NIVOLUMAB [Suspect]
     Indication: RENAL CELL CARCINOMA
     Route: 042
     Dates: start: 20140313
  2. IPILIMUMAB [Suspect]
     Indication: RENAL CELL CARCINOMA
     Route: 042
     Dates: start: 20140313
  3. MULTIVITAMIN [Concomitant]
     Dates: start: 20130822
  4. VITAMIN B12 [Concomitant]
     Dates: start: 20131201
  5. GLUCOSAMINE [Concomitant]
     Dates: start: 20131201
  6. OMEGA-3 [Concomitant]
     Dates: start: 20131201
  7. VITAMIN B COMPLEX [Concomitant]
     Dates: start: 20131201
  8. VITAMIN D [Concomitant]
     Dates: start: 20131201
  9. BENADRYL [Concomitant]
     Dates: start: 20140313
  10. HYDROCORTISONE CREAM [Concomitant]
     Dosage: 1 DF:4 APPLICATION
     Dates: start: 20140318
  11. FLUOCINONIDE [Concomitant]
     Dosage: 1 DF:2 APPLICATION
     Dates: start: 20140324

REACTIONS (1)
  - Hyperthyroidism [Recovered/Resolved]
